FAERS Safety Report 9062359 (Version 4)
Quarter: 2014Q1

REPORT INFORMATION
  Report Type: Spontaneous
  Country: US (occurrence: US)
  Receive Date: 20130213
  Receipt Date: 20140205
  Transmission Date: 20141002
  Serious: Yes (Other)
  Sender: FDA-Public Use
  Company Number: US-GLAXOSMITHKLINE-A1011759A

PATIENT
  Age: 60 Year
  Sex: Male

DRUGS (3)
  1. AVODART [Suspect]
     Indication: PRODUCT USED FOR UNKNOWN INDICATION
     Dosage: .5MG UNKNOWN
     Route: 048
  2. FLOMAX [Concomitant]
  3. FINASTERIDE [Concomitant]

REACTIONS (1)
  - Prostate cancer [Unknown]
